FAERS Safety Report 9551910 (Version 1)
Quarter: 2013Q3

REPORT INFORMATION
  Report Type: Spontaneous
  Country: US (occurrence: None)
  Receive Date: 20130923
  Receipt Date: 20130923
  Transmission Date: 20140515
  Serious: Yes (Hospitalization)
  Sender: FDA-Public Use
  Company Number: 2013-US-0000735

PATIENT
  Age: 22 Year
  Sex: Male
  Weight: 106.6 kg

DRUGS (1)
  1. XYREM [Suspect]
     Route: 048
     Dates: start: 20130612, end: 201307

REACTIONS (15)
  - Hypoaesthesia [None]
  - Dysarthria [None]
  - Blood potassium decreased [None]
  - Choking [None]
  - Oxygen saturation decreased [None]
  - Syncope [None]
  - Cold sweat [None]
  - Loss of consciousness [None]
  - Blood pressure increased [None]
  - Snoring [None]
  - Headache [None]
  - Urinary incontinence [None]
  - Anxiety [None]
  - Panic attack [None]
  - Somnolence [None]
